FAERS Safety Report 20906210 (Version 1)
Quarter: 2022Q2

REPORT INFORMATION
  Report Type: Spontaneous
  Country: US (occurrence: US)
  Receive Date: 20220602
  Receipt Date: 20220602
  Transmission Date: 20220721
  Serious: No
  Sender: FDA-Public Use
  Company Number: US-PFIZER INC-202200783732

PATIENT
  Age: 72 Year
  Sex: Male
  Weight: 90.72 kg

DRUGS (3)
  1. PAXLOVID [Suspect]
     Active Substance: NIRMATRELVIR\RITONAVIR
     Indication: COVID-19 treatment
     Dosage: 3 DF, 2X/DAY [3 TABLETS TWICE A DAY BY MOUTH. 150MG NIRMATRELVIR/100MG RITONAVIR]
     Route: 048
     Dates: start: 20220525, end: 20220530
  2. LISINOPRIL [Concomitant]
     Active Substance: LISINOPRIL
     Indication: Blood pressure abnormal
     Dosage: 20 MG, 1X/DAY
     Route: 048
  3. ATORVASTATIN [Concomitant]
     Active Substance: ATORVASTATIN
     Indication: Blood cholesterol increased
     Dosage: 20 MG, 1X/DAY (20MG ONCE A DAY BY MOUTH AT NIGHT)
     Route: 048

REACTIONS (3)
  - Dizziness [Recovered/Resolved]
  - Tremor [Recovered/Resolved]
  - Chills [Recovered/Resolved]

NARRATIVE: CASE EVENT DATE: 20220526
